FAERS Safety Report 8541505-1 (Version None)
Quarter: 2012Q3

REPORT INFORMATION
  Report Type: 
  Country: None (occurrence: None)
  Receive Date: 20120726
  Receipt Date: 20120719
  Transmission Date: 20120928
  Serious: Yes (Other)
  Sender: FDA-Public Use
  Company Number: US-JNJFOC-20120516289

PATIENT
  Age: 68 Year
  Sex: Male

DRUGS (1)
  1. XARELTO [Suspect]
     Indication: AORTIC VALVE REPLACEMENT
     Route: 048

REACTIONS (2)
  - CARDIAC TAMPONADE [None]
  - INTERNATIONAL NORMALISED RATIO INCREASED [None]
